FAERS Safety Report 11521933 (Version 1)
Quarter: 2015Q3

REPORT INFORMATION
  Report Type: Spontaneous
  Country: US (occurrence: US)
  Receive Date: 20150903
  Receipt Date: 20150903
  Transmission Date: 20151125
  Serious: No
  Sender: FDA-Public Use
  Company Number: US-ELI_LILLY_AND_COMPANY-US201212001709

PATIENT
  Age: 65 Year
  Sex: Male
  Weight: 95.24 kg

DRUGS (1)
  1. CYMBALTA [Suspect]
     Active Substance: DULOXETINE HYDROCHLORIDE
     Indication: MUSCULOSKELETAL PAIN
     Dosage: 60 MG, QD
     Dates: start: 20110927

REACTIONS (2)
  - Iritis [Not Recovered/Not Resolved]
  - Peyronie^s disease [Not Recovered/Not Resolved]
